FAERS Safety Report 6071116-1 (Version None)
Quarter: 2009Q1

REPORT INFORMATION
  Report Type: 
  Country: None (occurrence: None)
  Receive Date: 20090209
  Receipt Date: 20090202
  Transmission Date: 20090719
  Serious: Yes (Other)
  Sender: FDA-Public Use
  Company Number: ES-ASTRAZENECA-2009AC00483

PATIENT
  Age: 27 Year
  Sex: Female

DRUGS (2)
  1. ZOMIG [Suspect]
     Indication: HEADACHE
     Route: 048
     Dates: start: 20081125, end: 20081125
  2. SERETIDE [Concomitant]
     Dosage: 50/500 UG
     Route: 055
     Dates: start: 20050101

REACTIONS (5)
  - ARTHRALGIA [None]
  - ASTHENIA [None]
  - CHEST PAIN [None]
  - MALAISE [None]
  - MYALGIA [None]
